FAERS Safety Report 12156059 (Version 4)
Quarter: 2016Q2

REPORT INFORMATION
  Report Type: Report from Study
  Country: US (occurrence: US)
  Receive Date: 20160307
  Receipt Date: 20160520
  Transmission Date: 20160815
  Serious: Yes (Other)
  Sender: FDA-Public Use
  Company Number: US-BAYER-2016-036854

PATIENT
  Age: 69 Year
  Sex: Male

DRUGS (2)
  1. STIVARGA [Suspect]
     Active Substance: REGORAFENIB
     Indication: COLORECTAL CANCER METASTATIC
     Dosage: 40 MG, QD
     Route: 048
     Dates: start: 20160404
  2. STIVARGA [Suspect]
     Active Substance: REGORAFENIB
     Indication: COLORECTAL CANCER METASTATIC
     Dosage: 80 MG, QD
     Route: 048
     Dates: start: 20160220, end: 20160310

REACTIONS (17)
  - Chest discomfort [None]
  - Rash [None]
  - Headache [None]
  - Pain in extremity [None]
  - Skin exfoliation [None]
  - Sluggishness [None]
  - Alopecia [None]
  - Glossodynia [Recovering/Resolving]
  - Muscle tightness [None]
  - Sneezing [None]
  - Palmar-plantar erythrodysaesthesia syndrome [None]
  - Skin fissures [None]
  - Dysphonia [Recovering/Resolving]
  - Nasal congestion [None]
  - Gait disturbance [None]
  - Muscular weakness [Recovered/Resolved]
  - Blood pressure systolic increased [Recovering/Resolving]

NARRATIVE: CASE EVENT DATE: 201604
